APPROVED DRUG PRODUCT: AZATHIOPRINE
Active Ingredient: AZATHIOPRINE
Strength: 25MG
Dosage Form/Route: TABLET;ORAL
Application: A077621 | Product #002 | TE Code: AB
Applicant: ZYDUS PHARMACEUTICALS USA INC
Approved: Sep 5, 2008 | RLD: No | RS: No | Type: RX